FAERS Safety Report 21107167 (Version 2)
Quarter: 2022Q3

REPORT INFORMATION
  Report Type: Spontaneous
  Country: US (occurrence: US)
  Receive Date: 20220720
  Receipt Date: 20220829
  Transmission Date: 20221027
  Serious: No
  Sender: FDA-Public Use
  Company Number: US-TEVA-2022-US-2052754

PATIENT
  Age: 68 Year
  Sex: Female

DRUGS (3)
  1. CARBIDOPA AND LEVODOPA [Suspect]
     Active Substance: CARBIDOPA\LEVODOPA
     Indication: Parkinson^s disease
     Dosage: DOSE: 25-100 MG-MG
     Route: 065
  2. CARBIDOPA\LEVODOPA [Suspect]
     Active Substance: CARBIDOPA\LEVODOPA
     Indication: Product used for unknown indication
     Route: 065
  3. PROPRANOLOL [Suspect]
     Active Substance: PROPRANOLOL HYDROCHLORIDE
     Indication: Tremor
     Route: 065

REACTIONS (7)
  - Lip swelling [Recovered/Resolved]
  - Laryngospasm [Recovered/Resolved]
  - Fear [Recovered/Resolved]
  - Reaction to colouring [Unknown]
  - Product dose omission issue [Unknown]
  - Restless legs syndrome [Unknown]
  - Fatigue [Unknown]
